FAERS Safety Report 13606112 (Version 1)
Quarter: 2017Q2

REPORT INFORMATION
  Report Type: Spontaneous
  Country: None (occurrence: US)
  Receive Date: 20170602
  Receipt Date: 20170602
  Transmission Date: 20170830
  Serious: Yes (Hospitalization)
  Sender: FDA-Public Use
  Company Number: None

PATIENT
  Age: 91 Year
  Sex: Male
  Weight: 73.8 kg

DRUGS (5)
  1. LOVENOX [Concomitant]
     Active Substance: ENOXAPARIN SODIUM
  2. 5-FLUOROURACIL (5-FU) [Suspect]
     Active Substance: FLUOROURACIL
     Dates: end: 20170510
  3. ELOXATIN [Suspect]
     Active Substance: OXALIPLATIN
     Dates: end: 20170508
  4. PLAVIX [Concomitant]
     Active Substance: CLOPIDOGREL BISULFATE
  5. LEUCOVORIN CALCIUM. [Suspect]
     Active Substance: LEUCOVORIN CALCIUM
     Dates: end: 20170508

REACTIONS (7)
  - Hypotension [None]
  - Dehydration [None]
  - Haemoglobin decreased [None]
  - Bradycardia [None]
  - Lower gastrointestinal haemorrhage [None]
  - Sinus tachycardia [None]
  - Diarrhoea [None]

NARRATIVE: CASE EVENT DATE: 20170529
